FAERS Safety Report 6458415-6 (Version None)
Quarter: 2009Q4

REPORT INFORMATION
  Report Type: 
  Country: None (occurrence: None)
  Receive Date: 20091125
  Receipt Date: 20090723
  Transmission Date: 20100525
  Serious: No
  Sender: FDA-Public Use
  Company Number: US-AMGEN-KDL357215

PATIENT
  Sex: Female

DRUGS (15)
  1. ENBREL [Suspect]
     Indication: PSORIASIS
     Route: 058
     Dates: start: 20090523
  2. CYMBALTA [Concomitant]
  3. PROTOPIC [Concomitant]
  4. FLONASE [Concomitant]
  5. CLARITIN [Concomitant]
  6. VICODIN [Concomitant]
  7. ASPIRIN [Concomitant]
  8. DIOVAN [Concomitant]
  9. SORIATANE [Concomitant]
  10. UNSPECIFIED MEDICATION [Concomitant]
  11. MELATONIN [Concomitant]
  12. DETROL [Concomitant]
  13. UNSPECIFIED ALLERGY MEDICATION [Concomitant]
  14. CLOBETASOL PROPIONATE [Concomitant]
  15. SOLEXA [Concomitant]

REACTIONS (2)
  - ABSCESS NECK [None]
  - CELLULITIS [None]
